FAERS Safety Report 7414189-3 (Version None)
Quarter: 2011Q2

REPORT INFORMATION
  Report Type: 
  Country: None (occurrence: None)
  Receive Date: 20110411
  Receipt Date: 20110411
  Transmission Date: 20111010
  Serious: Yes (Other)
  Sender: FDA-Public Use
  Company Number: None

PATIENT
  Age: 54 Year
  Sex: Male
  Weight: 114.3065 kg

DRUGS (2)
  1. OXYCONTIN [Suspect]
     Indication: BACK INJURY
     Dosage: 30MG/90 1 EVERY 8 HR. ORAL
     Route: 048
     Dates: start: 20100101
  2. OXYCONTIN [Suspect]
     Indication: NERVE COMPRESSION
     Dosage: 30MG/90 1 EVERY 8 HR. ORAL
     Route: 048
     Dates: start: 20100101

REACTIONS (2)
  - DRUG INEFFECTIVE [None]
  - PRODUCT FORMULATION ISSUE [None]
